FAERS Safety Report 4560577-2 (Version None)
Quarter: 2005Q1

REPORT INFORMATION
  Report Type: 
  Country: None (occurrence: None)
  Receive Date: 20050125
  Receipt Date: 20050121
  Transmission Date: 20050727
  Serious: Yes (Death)
  Sender: FDA-Public Use
  Company Number: PHEH2005US01229

PATIENT
  Sex: Male

DRUGS (1)
  1. SANDOSTATIN [Suspect]
     Dosage: UNK, BID
     Dates: start: 19970101

REACTIONS (1)
  - PROSTATE CANCER [None]
